FAERS Safety Report 21868095 (Version 1)
Quarter: 2023Q1

REPORT INFORMATION
  Report Type: Spontaneous
  Country: US (occurrence: US)
  Receive Date: 20230116
  Receipt Date: 20230116
  Transmission Date: 20230418
  Serious: No
  Sender: FDA-Public Use
  Company Number: US-JNJFOC-20230117074

PATIENT
  Age: 87 Year
  Sex: Female

DRUGS (1)
  1. ZYRTEC [Suspect]
     Active Substance: CETIRIZINE HYDROCHLORIDE
     Indication: Hypersensitivity
     Dosage: PRODUCT START DATE: 15 TO 20 YEARS FROM NOW
     Route: 065

REACTIONS (2)
  - Product package associated injury [Recovered/Resolved]
  - Product packaging difficult to open [Unknown]
